FAERS Safety Report 8384415-5 (Version None)
Quarter: 2012Q2

REPORT INFORMATION
  Report Type: 
  Country: None (occurrence: None)
  Receive Date: 20120524
  Receipt Date: 20120521
  Transmission Date: 20120825
  Serious: Yes (Death)
  Sender: FDA-Public Use
  Company Number: US-GLAXOSMITHKLINE-A0935714A

PATIENT
  Sex: Female

DRUGS (1)
  1. AVANDIA [Suspect]
     Indication: DIABETES MELLITUS
     Route: 048
     Dates: start: 20010101, end: 20020101

REACTIONS (4)
  - MYOCARDIAL INFARCTION [None]
  - CARDIAC DEATH [None]
  - ARTERIAL DISORDER [None]
  - CARDIAC FAILURE CONGESTIVE [None]
